FAERS Safety Report 4930422-1 (Version None)
Quarter: 2006Q1

REPORT INFORMATION
  Report Type: 
  Country: None (occurrence: None)
  Receive Date: 20060302
  Receipt Date: 20051212
  Transmission Date: 20060701
  Serious: Yes (Hospitalization)
  Sender: FDA-Public Use
  Company Number: JP-AVENTIS-200521004GDDC

PATIENT
  Age: 61 Year
  Sex: Male
  Weight: 52 kg

DRUGS (12)
  1. RIFADIN [Suspect]
     Indication: LYMPHADENITIS
     Route: 048
     Dates: start: 20051111, end: 20051120
  2. RIFADIN [Suspect]
     Route: 048
     Dates: start: 20051229, end: 20051231
  3. RIFADIN [Suspect]
     Route: 048
     Dates: start: 20060101, end: 20060103
  4. RIFADIN [Suspect]
     Route: 048
     Dates: start: 20060104
  5. HYDRA [Suspect]
     Indication: LYMPHADENITIS
     Route: 048
     Dates: start: 20051111, end: 20051120
  6. HYDRA [Suspect]
     Route: 048
     Dates: start: 20051229
  7. PYRAMIDE [Suspect]
     Indication: LYMPHADENITIS
     Route: 048
     Dates: start: 20051111, end: 20051122
  8. ESANBUTOL [Suspect]
     Indication: LYMPHADENITIS
     Route: 048
     Dates: start: 20051111, end: 20051122
  9. ESANBUTOL [Suspect]
     Route: 048
     Dates: start: 20060104
  10. PYDOXAL [Suspect]
     Indication: LYMPHADENITIS
     Route: 048
     Dates: start: 20051111, end: 20051122
  11. PYDOXAL [Suspect]
     Route: 048
     Dates: start: 20051229
  12. STREPTOMYCIN [Concomitant]
     Route: 030
     Dates: start: 20060101

REACTIONS (4)
  - PLATELET COUNT DECREASED [None]
  - PYREXIA [None]
  - RED BLOOD CELL COUNT DECREASED [None]
  - WHITE BLOOD CELL COUNT DECREASED [None]
